FAERS Safety Report 25340737 (Version 1)
Quarter: 2025Q2

REPORT INFORMATION
  Report Type: Spontaneous
  Country: US (occurrence: US)
  Receive Date: 20250521
  Receipt Date: 20250521
  Transmission Date: 20250717
  Serious: No
  Sender: BRISTOL-MYERS SQUIBB COMPANY
  Company Number: US-BRISTOL-MYERS SQUIBB COMPANY-2025-072436

PATIENT
  Age: 65 Year
  Sex: Male

DRUGS (1)
  1. LENALIDOMIDE [Suspect]
     Active Substance: LENALIDOMIDE
     Indication: Bone cancer
     Route: 048
     Dates: start: 20250508

REACTIONS (5)
  - Off label use [Unknown]
  - Constipation [Unknown]
  - Insomnia [Unknown]
  - Fatigue [Unknown]
  - Abdominal distension [Unknown]
